FAERS Safety Report 5011949-3 (Version None)
Quarter: 2006Q2

REPORT INFORMATION
  Report Type: 
  Country: None (occurrence: None)
  Receive Date: 20060524
  Receipt Date: 20060314
  Transmission Date: 20061013
  Serious: Yes (Death, Hospitalization)
  Sender: FDA-Public Use
  Company Number: T200600342

PATIENT
  Age: 29 Year
  Sex: Male

DRUGS (5)
  1. METHADOSE ORAL CONCENTRATE(METHADONE HYDROCHLORIDE) SYRUP, 10MG/ML [Suspect]
     Dosage: ORAL
     Route: 048
  2. COCAINE (COCAINE) [Suspect]
  3. METAMFETAMINE (METAMFETAMINE) [Suspect]
  4. MARIJUANA (CANNABIS SATIVA) [Suspect]
  5. BENZODIAZEPINE DERIVATIVES() [Suspect]

REACTIONS (10)
  - BLOOD PRESSURE INCREASED [None]
  - BODY TEMPERATURE INCREASED [None]
  - DRUG ABUSER [None]
  - HAEMODYNAMIC INSTABILITY [None]
  - HAEMORRHAGE [None]
  - HEART RATE INCREASED [None]
  - LOSS OF CONSCIOUSNESS [None]
  - RENAL FAILURE [None]
  - RESPIRATORY DISTRESS [None]
  - RHABDOMYOLYSIS [None]
